FAERS Safety Report 12110551 (Version 1)
Quarter: 2016Q1

REPORT INFORMATION
  Report Type: Not Available
  Country: US (occurrence: US)
  Receive Date: 20160224
  Receipt Date: 20160224
  Transmission Date: 20160526
  Serious: Yes (Hospitalization)
  Sender: FDA-Public Use
  Company Number: US-ANIPHARMA-2016-US-000694

PATIENT
  Age: 61 Year
  Sex: Female
  Weight: 118.39 kg

DRUGS (3)
  1. AMLODIPINE + BENAZEPRIL [Suspect]
     Active Substance: AMLODIPINE BESYLATE\BENAZEPRIL HYDROCHLORIDE
     Dosage: 10 MG + 40 MG DAILY
     Route: 048
  2. TRIAMTERENE AND HYDROCHLOROTHIAZIDE [Suspect]
     Active Substance: HYDROCHLOROTHIAZIDE\TRIAMTERENE
     Dosage: 37.5 MG + 25 MG DAILY
     Route: 048
  3. PRAZOSIN HCL [Suspect]
     Active Substance: PRAZOSIN HYDROCHLORIDE
     Dosage: 5 MG TWO TIMES PER DAY
     Route: 048

REACTIONS (4)
  - Hypotension [None]
  - Blood pressure increased [None]
  - Posterior reversible encephalopathy syndrome [Unknown]
  - Acute kidney injury [None]
